FAERS Safety Report 5727581-X (Version None)
Quarter: 2008Q2

REPORT INFORMATION
  Report Type: 
  Country: None (occurrence: None)
  Receive Date: 20080428
  Receipt Date: 20080115
  Transmission Date: 20081010
  Serious: Yes (Other)
  Sender: FDA-Public Use
  Company Number: 166368USA

PATIENT
  Sex: Female

DRUGS (1)
  1. MINOCYCLINE HCL [Suspect]
     Indication: ACNE
     Dates: start: 20060101, end: 20060511

REACTIONS (4)
  - BLINDNESS [None]
  - HEADACHE [None]
  - PAPILLOEDEMA [None]
  - PHOTOPHOBIA [None]
